FAERS Safety Report 23657349 (Version 1)
Quarter: 2024Q1

REPORT INFORMATION
  Report Type: Spontaneous
  Country: US (occurrence: None)
  Receive Date: 20240320
  Receipt Date: 20240320
  Transmission Date: 20240410
  Serious: Yes (unspecified)
  Sender: FDA-Public Use
  Company Number: None

PATIENT
  Age: 68 Year
  Sex: Male
  Weight: 103.5 kg

DRUGS (21)
  1. CABENUVA [Suspect]
     Active Substance: CABOTEGRAVIR\RILPIVIRINE
     Indication: HIV infection
     Dosage: OTHER STRENGTH : OTHER;?OTHER QUANTITY : 2 INJECTION(S);?OTHER FREQUENCY : BI-MONTHLY;?
     Route: 030
     Dates: start: 20230317, end: 20240319
  2. Gaba-Ketop-Lido 6-10-10% Gel [Concomitant]
  3. TRAZODONE [Concomitant]
     Active Substance: TRAZODONE HYDROCHLORIDE
  4. ZOLPIDEM [Concomitant]
     Active Substance: ZOLPIDEM TARTRATE
  5. ATROPINE SULFATE\DIPHENOXYLATE [Concomitant]
     Active Substance: ATROPINE SULFATE\DIPHENOXYLATE
  6. GABAPENTIN [Concomitant]
     Active Substance: GABAPENTIN
  7. ATORVASTATIN [Concomitant]
     Active Substance: ATORVASTATIN
  8. NOVA [Concomitant]
  9. EPINEPHRINE [Concomitant]
     Active Substance: EPINEPHRINE
  10. NITROGLYCERN [Concomitant]
  11. OXYCODONE [Concomitant]
     Active Substance: OXYCODONE\OXYCODONE HYDROCHLORIDE
  12. ALBUTEROL [Concomitant]
     Active Substance: ALBUTEROL
  13. METOPROLOL TARTRATE [Concomitant]
     Active Substance: METOPROLOL TARTRATE
  14. OMEPRAZOLE [Concomitant]
     Active Substance: OMEPRAZOLE
  15. SPIRIVA [Concomitant]
     Active Substance: TIOTROPIUM BROMIDE MONOHYDRATE
  16. Testost [Concomitant]
  17. SILDENAFIL [Concomitant]
     Active Substance: SILDENAFIL
  18. FUROSEMIDE [Concomitant]
     Active Substance: FUROSEMIDE
  19. ACYCLOVIR [Concomitant]
     Active Substance: ACYCLOVIR
  20. ADVAIR HFA [Concomitant]
     Active Substance: FLUTICASONE PROPIONATE\SALMETEROL XINAFOATE
  21. MULTI-VITAMIN [Concomitant]
     Active Substance: .ALPHA.-TOCOPHEROL ACETATE, DL-\ASCORBIC ACID\CYANOCOBALAMIN\FLUORIDE ION\FOLIC ACID\NIACIN\PYRIDOXI

REACTIONS (2)
  - Gait disturbance [None]
  - Immobile [None]

NARRATIVE: CASE EVENT DATE: 20240123
